FAERS Safety Report 8305514-X (Version None)
Quarter: 2012Q2

REPORT INFORMATION
  Report Type: 
  Country: None (occurrence: None)
  Receive Date: 20120423
  Receipt Date: 20120417
  Transmission Date: 20120825
  Serious: Yes (Hospitalization, Other)
  Sender: FDA-Public Use
  Company Number: AT-GLAXOSMITHKLINE-B0792291A

PATIENT
  Age: 29 Year
  Sex: Female
  Weight: 72 kg

DRUGS (5)
  1. ESLICARBAZEPINE [Concomitant]
     Indication: PARTIAL SEIZURES
     Dosage: 1600MG PER DAY
     Route: 048
  2. LEVETIRACETAM [Concomitant]
     Indication: PARTIAL SEIZURES
     Dosage: 3000MG PER DAY
     Route: 048
  3. CLOBAZAM [Concomitant]
     Indication: PARTIAL SEIZURES
     Dosage: 20MG PER DAY
     Route: 048
  4. DULOXETINE HYDROCHLORIDE [Concomitant]
     Indication: DEPRESSION
     Dosage: 30MG PER DAY
     Route: 048
  5. POTIGA [Suspect]
     Indication: EPILEPSY
     Dosage: 600MG PER DAY
     Route: 048
     Dates: start: 20111201, end: 20120329

REACTIONS (1)
  - URINARY TRACT DISORDER [None]
